FAERS Safety Report 10520012 (Version 1)
Quarter: 2014Q4

REPORT INFORMATION
  Report Type: Spontaneous
  Country: IN (occurrence: IN)
  Receive Date: 20141015
  Receipt Date: 20141015
  Transmission Date: 20150528
  Serious: Yes (Other)
  Sender: FDA-Public Use
  Company Number: PHHY2014IN133781

PATIENT
  Age: 45 Year
  Sex: Male

DRUGS (1)
  1. QUETIAPINE [Suspect]
     Active Substance: QUETIAPINE
     Indication: INSOMNIA
     Dosage: 50 MG, UNK
     Route: 065

REACTIONS (9)
  - Drug abuse [Unknown]
  - Dysphoria [Unknown]
  - Euphoric mood [Unknown]
  - Feeling abnormal [Unknown]
  - Drug tolerance [Unknown]
  - Drug dependence [Unknown]
  - Sleep disorder [Unknown]
  - Irritability [Unknown]
  - Drug withdrawal syndrome [Unknown]
